FAERS Safety Report 25131768 (Version 1)
Quarter: 2025Q1

REPORT INFORMATION
  Report Type: Spontaneous
  Country: US (occurrence: US)
  Receive Date: 20250327
  Receipt Date: 20250327
  Transmission Date: 20250408
  Serious: No
  Sender: APELLIS PHARMACEUTICALS
  Company Number: US-APELLIS-2025-APL-0000921

PATIENT

DRUGS (1)
  1. SYFOVRE [Suspect]
     Active Substance: PEGCETACOPLAN
     Indication: Product used for unknown indication

REACTIONS (5)
  - Ocular discomfort [Recovered/Resolved]
  - Vision blurred [Recovered/Resolved]
  - Eye irritation [Recovered/Resolved]
  - Asthenopia [Recovered/Resolved]
  - Administration site bruise [Recovered/Resolved]

NARRATIVE: CASE EVENT DATE: 20250223
